FAERS Safety Report 5821867-6 (Version None)
Quarter: 2008Q3

REPORT INFORMATION
  Report Type: 
  Country: None (occurrence: None)
  Receive Date: 20080724
  Receipt Date: 20080715
  Transmission Date: 20090109
  Serious: Yes (Other)
  Sender: FDA-Public Use
  Company Number: IT-ROCHE-576037

PATIENT
  Age: 55 Year
  Sex: Female

DRUGS (1)
  1. PEGASYS [Suspect]
     Indication: HEPATITIS C
     Dosage: FORM REPORTED AS VIAL
     Route: 065

REACTIONS (2)
  - CARDIOVASCULAR DISORDER [None]
  - VENTRICULAR ARRHYTHMIA [None]
